FAERS Safety Report 6927966-X (Version None)
Quarter: 2010Q3

REPORT INFORMATION
  Report Type: 
  Country: None (occurrence: None)
  Receive Date: 20100817
  Receipt Date: 20100804
  Transmission Date: 20110219
  Serious: Yes (Other)
  Sender: FDA-Public Use
  Company Number: US-ELI_LILLY_AND_COMPANY-US201008001719

PATIENT
  Sex: Male

DRUGS (1)
  1. HUMALOG [Suspect]
     Indication: DIABETES MELLITUS

REACTIONS (8)
  - BACK PAIN [None]
  - BLOOD CHOLESTEROL INCREASED [None]
  - CARDIOVASCULAR DISORDER [None]
  - ERECTILE DYSFUNCTION [None]
  - GASTROOESOPHAGEAL REFLUX DISEASE [None]
  - HYPERTENSION [None]
  - NEOPLASM MALIGNANT [None]
  - NEPHROPATHY [None]
